FAERS Safety Report 14011786 (Version 2)
Quarter: 2017Q4

REPORT INFORMATION
  Report Type: Report from Study
  Country: US (occurrence: US)
  Receive Date: 20170926
  Receipt Date: 20171006
  Transmission Date: 20180321
  Serious: Yes (Hospitalization)
  Sender: FDA-Public Use
  Company Number: PHHO2017US013381

PATIENT

DRUGS (14)
  1. MERCAPTOPURINE. [Suspect]
     Active Substance: MERCAPTOPURINE
     Indication: ACUTE LYMPHOCYTIC LEUKAEMIA
     Dosage: 25 MG, UNK
     Route: 048
     Dates: start: 20170303
  2. INC424A [Suspect]
     Active Substance: RUXOLITINIB
     Indication: ACUTE LYMPHOCYTIC LEUKAEMIA
     Dosage: 10 MG, QD
     Route: 048
     Dates: start: 20170303
  3. DOXORUBICIN [Suspect]
     Active Substance: DOXORUBICIN
     Indication: ACUTE LYMPHOCYTIC LEUKAEMIA
     Dosage: 26 MG, DAYS 1, 8 + 15 D1
     Route: 042
     Dates: start: 20170713
  4. METHOTREXATE. [Suspect]
     Active Substance: METHOTREXATE
     Indication: ACUTE LYMPHOCYTIC LEUKAEMIA
     Dosage: 15 MG, DAYS 29 + 36 D1
     Route: 037
     Dates: start: 20170303
  5. METHOTREXATE. [Suspect]
     Active Substance: METHOTREXATE
     Dosage: 5250 MG, DAYS 1, 15, 29 + 43 D1
     Route: 042
     Dates: start: 20170509
  6. THIOGUANINE [Suspect]
     Active Substance: THIOGUANINE
     Dosage: MG X 1 DAY, DAYS 29-42 D1
     Route: 048
     Dates: start: 20170822, end: 20170904
  7. CYTARABINE. [Suspect]
     Active Substance: CYTARABINE
     Indication: ACUTE LYMPHOCYTIC LEUKAEMIA
     Dosage: 79 MG, DAYS 29-32 + 36-39
     Route: 042
     Dates: start: 20170303
  8. THIOGUANINE [Suspect]
     Active Substance: THIOGUANINE
     Indication: ACUTE LYMPHOCYTIC LEUKAEMIA
     Dosage: 60 MG X 6 DAYS AND 80 MG 1 DAY, DAYS 29-42 D1
     Route: 048
     Dates: start: 20170822, end: 20170904
  9. DEXAMETHASONE. [Suspect]
     Active Substance: DEXAMETHASONE
     Indication: ACUTE LYMPHOCYTIC LEUKAEMIA
     Dosage: 5.25 MG, BID, DAYS 1-7 + 15-21 D1
     Route: 048
     Dates: start: 20170713
  10. CYCLOPHOSPHAMIDE. [Suspect]
     Active Substance: CYCLOPHOSPHAMIDE
     Indication: ACUTE LYMPHOCYTIC LEUKAEMIA
     Dosage: 1050 MG, D1 AND D29
     Route: 042
     Dates: start: 20170303
  11. CYCLOPHOSPHAMIDE. [Suspect]
     Active Substance: CYCLOPHOSPHAMIDE
     Dosage: 1050 MG, DAY 29, D1
     Route: 042
     Dates: start: 20170303
  12. VINCRISTINE [Suspect]
     Active Substance: VINCRISTINE
     Indication: ACUTE LYMPHOCYTIC LEUKAEMIA
     Dosage: 1.6 MG, DAY 43 D1
     Route: 042
     Dates: start: 20170317, end: 20170905
  13. PEGASPARGASE [Suspect]
     Active Substance: PEGASPARGASE
     Indication: ACUTE LYMPHOCYTIC LEUKAEMIA
     Dosage: 2625 IU, DAY 43 D1
     Route: 042
     Dates: start: 20170317
  14. THIOGUANINE [Suspect]
     Active Substance: THIOGUANINE
     Dosage: 60 MG X 6 DAYS AND 80 MG 1 DAY, DAYS 29-42 D1
     Route: 048
     Dates: start: 20170822, end: 29170904

REACTIONS (3)
  - Device related sepsis [Recovered/Resolved]
  - Febrile neutropenia [Recovering/Resolving]
  - Anaemia [Recovered/Resolved]

NARRATIVE: CASE EVENT DATE: 20170913
